FAERS Safety Report 16571511 (Version 1)
Quarter: 2019Q3

REPORT INFORMATION
  Report Type: Spontaneous
  Country: US (occurrence: US)
  Receive Date: 20190713
  Receipt Date: 20190713
  Transmission Date: 20191004
  Serious: No
  Sender: FDA-Public Use
  Company Number: None

PATIENT
  Age: 49 Year
  Sex: Male

DRUGS (3)
  1. EQUATE SUPPORT ADVANCED LUBRICANT [Suspect]
     Active Substance: POLYETHYLENE GLYCOL 400\PROPYLENE GLYCOL
     Indication: DRY EYE
     Dosage: ?          QUANTITY:1 DROP(S);?
     Route: 047
     Dates: start: 20190401, end: 20190701
  2. BACITRACIN OPHTHALMIC OINTMENT USP [Suspect]
     Active Substance: BACITRACIN
     Indication: HORDEOLUM
     Dosage: ?          QUANTITY:1 CENTIMETER;?
     Route: 047
     Dates: start: 20190422, end: 20190525
  3. FLAXSEED OIL CAPSULES [Concomitant]

REACTIONS (3)
  - Hordeolum [None]
  - Therapeutic product effect incomplete [None]
  - Recalled product administered [None]

NARRATIVE: CASE EVENT DATE: 20190430
